FAERS Safety Report 4958978-3 (Version None)
Quarter: 2006Q1

REPORT INFORMATION
  Report Type: 
  Country: None (occurrence: None)
  Receive Date: 20060331
  Receipt Date: 20060306
  Transmission Date: 20060701
  Serious: Yes (Hospitalization, Other)
  Sender: FDA-Public Use
  Company Number: PHNU2006DE01222

PATIENT
  Age: 69 Year
  Sex: Female

DRUGS (1)
  1. CLOZAPINE [Suspect]
     Indication: SCHIZOPHRENIA
     Route: 048

REACTIONS (6)
  - ABSCESS [None]
  - LEUKOPENIA [None]
  - LYMPHOCYTOSIS [None]
  - MONOCYTE COUNT DECREASED [None]
  - NEUTROPENIA [None]
  - PYREXIA [None]
